FAERS Safety Report 9266265 (Version 2)
Quarter: 2013Q2

REPORT INFORMATION
  Report Type: Report from Study
  Country: US (occurrence: US)
  Receive Date: 20130502
  Receipt Date: 20130527
  Transmission Date: 20140414
  Serious: No
  Sender: FDA-Public Use
  Company Number: US-009507513-1304USA017271

PATIENT
  Age: 29 Year
  Sex: Female
  Weight: 72.11 kg

DRUGS (2)
  1. IMPLANON [Suspect]
     Dosage: UNK
     Route: 059
     Dates: start: 20100426, end: 20130429
  2. IMPLANON [Suspect]
     Dosage: UNK
     Route: 059
     Dates: start: 20130429, end: 20130523

REACTIONS (6)
  - Nausea [Unknown]
  - Headache [Unknown]
  - Dizziness [Unknown]
  - Menstruation irregular [Unknown]
  - Incorrect drug administration duration [Unknown]
  - Medical device removal [Unknown]
